FAERS Safety Report 6891301-6 (Version None)
Quarter: 2010Q3

REPORT INFORMATION
  Report Type: 
  Country: None (occurrence: None)
  Receive Date: 20100731
  Receipt Date: 20090728
  Transmission Date: 20110219
  Serious: No
  Sender: FDA-Public Use
  Company Number: US-PFIZER INC-2009247403

PATIENT

DRUGS (1)
  1. LIPITOR [Suspect]

REACTIONS (2)
  - PRURITUS [None]
  - URTICARIA [None]
